FAERS Safety Report 5168217-9 (Version None)
Quarter: 2006Q4

REPORT INFORMATION
  Report Type: 
  Country: None (occurrence: None)
  Receive Date: 20061130
  Receipt Date: 20030520
  Transmission Date: 20070319
  Serious: No
  Sender: FDA-Public Use
  Company Number: 23100345

PATIENT

DRUGS (1)
  1. ARGATROBAN [Suspect]

REACTIONS (1)
  - TORSADE DE POINTES [None]
